FAERS Safety Report 6690290-7 (Version None)
Quarter: 2010Q2

REPORT INFORMATION
  Report Type: 
  Country: None (occurrence: None)
  Receive Date: 20100412
  Receipt Date: 20091210
  Transmission Date: 20101027
  Serious: No
  Sender: FDA-Public Use
  Company Number: 1000010729

PATIENT
  Age: 2 Year
  Sex: Male

DRUGS (1)
  1. BYSTOLIC [Suspect]
     Dosage: (5 MG), ORAL
     Route: 048

REACTIONS (1)
  - ACCIDENTAL EXPOSURE [None]
